FAERS Safety Report 7514586-1 (Version None)
Quarter: 2011Q2

REPORT INFORMATION
  Report Type: 
  Country: None (occurrence: None)
  Receive Date: 20110520
  Receipt Date: 20110506
  Transmission Date: 20111010
  Serious: Yes (Hospitalization)
  Sender: FDA-Public Use
  Company Number: CIO11008996

PATIENT
  Age: 39 Year
  Sex: Female

DRUGS (4)
  1. EXTRA STRENGTH TYLENOL [Suspect]
     Indication: COUGH
     Dosage: 1-2 TABLETS EVERY 6 HOURS, ORAL
     Route: 048
  2. EXTRA STRENGTH TYLENOL [Suspect]
     Indication: OROPHARYNGEAL PAIN
     Dosage: 1-2 TABLETS EVERY 6 HOURS, ORAL
     Route: 048
  3. NYQUIL, VERSION/FLAVOR (ETHANOL 10-25%, DEXTROMETHORPHAN HYDROBROMIDE [Suspect]
     Indication: COUGH
     Dosage: 2 OUNCES, ORAL
     Route: 048
  4. NYQUIL, VERSION/FLAVOR (ETHANOL 10-25%, DEXTROMETHORPHAN HYDROBROMIDE [Suspect]
     Indication: OROPHARYNGEAL PAIN
     Dosage: 2 OUNCES, ORAL
     Route: 048

REACTIONS (33)
  - NAUSEA [None]
  - PERIORBITAL OEDEMA [None]
  - DIARRHOEA [None]
  - ABDOMINAL PAIN [None]
  - ALANINE AMINOTRANSFERASE INCREASED [None]
  - PROTHROMBIN TIME PROLONGED [None]
  - PROTEIN URINE [None]
  - PLATELET COUNT DECREASED [None]
  - BLOOD ALKALINE PHOSPHATASE INCREASED [None]
  - BODY TEMPERATURE INCREASED [None]
  - FIBRIN DEGRADATION PRODUCTS INCREASED [None]
  - BLOOD SODIUM DECREASED [None]
  - BLOOD BILIRUBIN INCREASED [None]
  - SPECIFIC GRAVITY URINE DECREASED [None]
  - BLOOD CHLORIDE DECREASED [None]
  - BILIRUBIN CONJUGATED INCREASED [None]
  - OCULAR ICTERUS [None]
  - BILIRUBIN URINE [None]
  - RED BLOOD CELLS URINE POSITIVE [None]
  - URINE SODIUM DECREASED [None]
  - FIBRIN D DIMER INCREASED [None]
  - RENAL FAILURE ACUTE [None]
  - VOMITING [None]
  - URINE OUTPUT DECREASED [None]
  - DISSEMINATED INTRAVASCULAR COAGULATION [None]
  - ECCHYMOSIS [None]
  - LIVER TENDERNESS [None]
  - BLOOD URINE PRESENT [None]
  - WHITE BLOOD CELLS URINE POSITIVE [None]
  - BLOOD PRESSURE INCREASED [None]
  - HEART RATE INCREASED [None]
  - HEPATOMEGALY [None]
  - ASPARTATE AMINOTRANSFERASE INCREASED [None]
